FAERS Safety Report 9664703 (Version 2)
Quarter: 2013Q4

REPORT INFORMATION
  Report Type: Report from Study
  Country: CA (occurrence: CA)
  Receive Date: 20131101
  Receipt Date: 20131101
  Transmission Date: 20140711
  Serious: Yes (Hospitalization)
  Sender: FDA-Public Use
  Company Number: CA-ABBVIE-10P-028-0659652-00

PATIENT
  Age: 49 Year
  Sex: Female

DRUGS (13)
  1. HUMIRA [Suspect]
     Indication: CROHN^S DISEASE
     Dosage: BASELINE, ONCE
     Route: 058
     Dates: start: 20080806, end: 20080806
  2. HUMIRA [Suspect]
     Dosage: WEEK 2, ONCE
     Route: 058
  3. HUMIRA [Suspect]
     Route: 058
     Dates: end: 20100310
  4. HUMIRA [Suspect]
     Route: 058
     Dates: start: 20101001
  5. NEXIUM [Concomitant]
     Indication: GASTROOESOPHAGEAL REFLUX DISEASE
     Dates: start: 20080716
  6. BUDESONIDE [Concomitant]
     Indication: CROHN^S DISEASE
     Dates: start: 20080716
  7. SYNTHROID [Concomitant]
     Indication: HYPOTHYROIDISM
     Dates: start: 1995, end: 200902
  8. SYNTHROID [Concomitant]
     Dates: start: 200902
  9. LORAZEPAM [Concomitant]
     Indication: INSOMNIA
     Dates: start: 200806
  10. REACTINE [Concomitant]
     Indication: RASH
     Dates: start: 200902
  11. SWINE FLU VACCINATION MONOVALENT [Concomitant]
     Indication: PROPHYLAXIS
     Dates: start: 200911, end: 200911
  12. SWINE FLU VACCINATION MONOVALENT [Concomitant]
     Indication: H1N1 INFLUENZA
  13. INFLUENZA [Concomitant]
     Indication: ANTIVIRAL PROPHYLAXIS
     Dates: start: 200911, end: 200911

REACTIONS (2)
  - Crohn^s disease [Recovered/Resolved]
  - Anal fistula [Recovered/Resolved]
